FAERS Safety Report 7919236-8 (Version None)
Quarter: 2011Q4

REPORT INFORMATION
  Report Type: 
  Country: None (occurrence: None)
  Receive Date: 20111114
  Receipt Date: 20111104
  Transmission Date: 20120403
  Serious: Yes (Death, Hospitalization)
  Sender: FDA-Public Use
  Company Number: 2010JP007283

PATIENT
  Age: 76 Year
  Sex: Male
  Weight: 50 kg

DRUGS (16)
  1. FUROSEMIDE [Concomitant]
  2. PROGRAF [Suspect]
     Indication: COLITIS ULCERATIVE
     Dosage: 5 MG, BID, ORAL ; 4 M, /D, ORAL ; 5 MG, BID, ORAL ; 12 MG, /D, ORAL ; 12 MG, /D, ORAL
     Route: 048
     Dates: start: 20101109
  3. PROGRAF [Suspect]
     Indication: COLITIS ULCERATIVE
     Dosage: 5 MG, BID, ORAL ; 4 M, /D, ORAL ; 5 MG, BID, ORAL ; 12 MG, /D, ORAL ; 12 MG, /D, ORAL
     Route: 048
     Dates: start: 20101004, end: 20101015
  4. PROGRAF [Suspect]
     Indication: COLITIS ULCERATIVE
     Dosage: 5 MG, BID, ORAL ; 4 M, /D, ORAL ; 5 MG, BID, ORAL ; 12 MG, /D, ORAL ; 12 MG, /D, ORAL
     Route: 048
     Dates: start: 20101019, end: 20101108
  5. PROGRAF [Suspect]
     Indication: COLITIS ULCERATIVE
     Dosage: 5 MG, BID, ORAL ; 4 M, /D, ORAL ; 5 MG, BID, ORAL ; 12 MG, /D, ORAL ; 12 MG, /D, ORAL
     Route: 048
     Dates: start: 20101016, end: 20101018
  6. ISONIAZID [Concomitant]
  7. COTRIM [Concomitant]
  8. PREDNISOLONE [Concomitant]
  9. FOSAMAX [Concomitant]
  10. FAMOTIDINE [Concomitant]
  11. IMURAN [Suspect]
     Indication: COLITIS ULCERATIVE
     Dosage: 50 MG, UID/QD, ORAL ; 25 MG, /D, ORAL
     Route: 048
     Dates: start: 20101130, end: 20101203
  12. IMURAN [Suspect]
     Indication: COLITIS ULCERATIVE
     Dosage: 50 MG, UID/QD, ORAL ; 25 MG, /D, ORAL
     Route: 048
     Dates: start: 20101113, end: 20101129
  13. FAMOTIDINE [Concomitant]
  14. PENTASA [Concomitant]
  15. ALLOPURINOL [Suspect]
     Indication: HYPERURICAEMIA
     Dosage: 100 MG, UID/QD, ORAL
     Route: 048
     Dates: start: 20100412, end: 20101203
  16. BETAMETHASONE [Concomitant]

REACTIONS (9)
  - PANCYTOPENIA [None]
  - SUBARACHNOID HAEMORRHAGE [None]
  - GAIT DISTURBANCE [None]
  - ALTERED STATE OF CONSCIOUSNESS [None]
  - FALL [None]
  - HEAD INJURY [None]
  - CEREBRAL INFARCTION [None]
  - NERVOUS SYSTEM DISORDER [None]
  - DIZZINESS [None]
